FAERS Safety Report 16035767 (Version 5)
Quarter: 2021Q4

REPORT INFORMATION
  Report Type: Spontaneous
  Country: US (occurrence: US)
  Receive Date: 20190305
  Receipt Date: 20211231
  Transmission Date: 20220303
  Serious: Yes (Hospitalization, Other)
  Sender: FDA-Public Use
  Company Number: PHEH2019US009017

PATIENT
  Age: 70 Year
  Sex: Female

DRUGS (3)
  1. VOTRIENT [Suspect]
     Active Substance: PAZOPANIB HYDROCHLORIDE
     Indication: Illness
     Dosage: 200 MG, QD
     Route: 048
     Dates: start: 20161019
  2. VOTRIENT [Suspect]
     Active Substance: PAZOPANIB HYDROCHLORIDE
     Indication: Renal cancer
     Dosage: UNK
     Route: 048
     Dates: start: 20190201
  3. VOTRIENT [Suspect]
     Active Substance: PAZOPANIB HYDROCHLORIDE
     Dosage: 200 MG, QD
     Route: 048
     Dates: start: 20161020

REACTIONS (13)
  - Myocardial infarction [Unknown]
  - Atrioventricular block [Unknown]
  - Diabetes mellitus [Unknown]
  - Memory impairment [Unknown]
  - Confusional state [Unknown]
  - Neoplasm [Unknown]
  - Eye haemorrhage [Unknown]
  - Incision site haemorrhage [Unknown]
  - Eye pain [Unknown]
  - Epistaxis [Unknown]
  - Decreased appetite [Not Recovered/Not Resolved]
  - Diarrhoea [Recovering/Resolving]
  - Nausea [Unknown]

NARRATIVE: CASE EVENT DATE: 20181001
